FAERS Safety Report 22596632 (Version 1)
Quarter: 2023Q2

REPORT INFORMATION
  Report Type: Spontaneous
  Country: US (occurrence: None)
  Receive Date: 20230613
  Receipt Date: 20230613
  Transmission Date: 20230721
  Serious: Yes (Other)
  Sender: FDA-Public Use
  Company Number: None

PATIENT
  Age: 7 Year
  Sex: Male

DRUGS (3)
  1. HUMIRA [Suspect]
     Active Substance: ADALIMUMAB
     Indication: Juvenile idiopathic arthritis
     Dosage: OTHER QUANTITY : 20MG/0.2ML ;?FREQUENCY : EVERY OTHER WEEK;?
     Route: 058
     Dates: start: 20230106
  2. FOLIC ACID [Concomitant]
     Active Substance: FOLIC ACID
  3. METHOTREXATE [Concomitant]

REACTIONS (2)
  - Injection site swelling [None]
  - Injection site mass [None]

NARRATIVE: CASE EVENT DATE: 20230613
